FAERS Safety Report 9422535 (Version 2)
Quarter: 2013Q3

REPORT INFORMATION
  Report Type: Spontaneous
  Country: US (occurrence: US)
  Receive Date: 20130726
  Receipt Date: 20130909
  Transmission Date: 20140515
  Serious: Yes (Hospitalization)
  Sender: FDA-Public Use
  Company Number: US-009507513-1307USA010633

PATIENT
  Age: 33 Year
  Sex: Male
  Weight: 78.5 kg

DRUGS (4)
  1. ANTIVENIN [Suspect]
     Indication: ARTHROPOD BITE
     Dosage: ONE KIT
     Dates: start: 20130713, end: 20130713
  2. VICODIN [Concomitant]
     Indication: PAIN
  3. DILAUDID [Concomitant]
     Indication: PAIN
  4. ZOFRAN [Suspect]
     Indication: NAUSEA

REACTIONS (3)
  - Pain in extremity [Not Recovered/Not Resolved]
  - Swelling [Not Recovered/Not Resolved]
  - Drug ineffective [Unknown]
